FAERS Safety Report 7559169-2 (Version None)
Quarter: 2011Q2

REPORT INFORMATION
  Report Type: 
  Country: None (occurrence: None)
  Receive Date: 20110621
  Receipt Date: 20110616
  Transmission Date: 20111010
  Serious: Yes (Hospitalization, Other)
  Sender: FDA-Public Use
  Company Number: FR-PFIZER INC-2011133141

PATIENT
  Age: 4 Year
  Sex: Male

DRUGS (3)
  1. IBUPROFEN (ADVIL) [Suspect]
     Indication: GASTROENTERITIS ESCHERICHIA COLI
  2. IBUPROFEN (ADVIL) [Suspect]
     Indication: DIARRHOEA
  3. IBUPROFEN (ADVIL) [Suspect]
     Indication: ABDOMINAL PAIN
     Dosage: UNK
     Route: 065

REACTIONS (1)
  - RENAL FAILURE [None]
